FAERS Safety Report 9179057 (Version 1)
Quarter: 2013Q1

REPORT INFORMATION
  Report Type: Spontaneous
  Country: BR (occurrence: BR)
  Receive Date: 20130321
  Receipt Date: 20130321
  Transmission Date: 20140127
  Serious: Yes (Other)
  Sender: FDA-Public Use
  Company Number: BR-ABBOTT-13X-020-1064452-00

PATIENT
  Sex: Male
  Weight: 80 kg

DRUGS (4)
  1. DEPAKOTE ER [Suspect]
     Indication: CONVULSION
  2. BARBEXACLONE [Suspect]
     Indication: CONVULSION
     Route: 048
     Dates: start: 1984, end: 1993
  3. HIDANTAL [Suspect]
     Indication: CONVULSION
     Dosage: ONE TABLET EARLY AND ONE AT NIGHT
     Route: 048
  4. LOSARTAN POTASSIUM [Concomitant]
     Indication: BLOOD PRESSURE

REACTIONS (13)
  - Infarction [Unknown]
  - Memory impairment [Not Recovered/Not Resolved]
  - Fall [Recovered/Resolved]
  - Tongue haemorrhage [Recovered/Resolved]
  - Dizziness [Not Recovered/Not Resolved]
  - Contusion [Recovered/Resolved]
  - Cerebral disorder [Unknown]
  - Feeling jittery [Not Recovered/Not Resolved]
  - Vitamin B12 decreased [Unknown]
  - Irritability [Unknown]
  - Drug dose omission [Unknown]
  - Adverse event [Unknown]
  - Medication error [Unknown]
